FAERS Safety Report 5597987-0 (Version None)
Quarter: 2008Q1

REPORT INFORMATION
  Report Type: 
  Country: None (occurrence: None)
  Receive Date: 20080122
  Receipt Date: 20080117
  Transmission Date: 20080703
  Serious: Yes (Disabling)
  Sender: FDA-Public Use
  Company Number: BR-BAYER-200717663GPV

PATIENT
  Age: 31 Year
  Sex: Male
  Weight: 85 kg

DRUGS (3)
  1. VARDENAFIL [Suspect]
     Indication: ERECTILE DYSFUNCTION
     Dosage: AS USED: 5 MG  UNIT DOSE: 10 MG
     Route: 048
  2. CLONAZEPAM [Concomitant]
     Indication: MIGRAINE
     Route: 048
  3. TENVIL [Concomitant]
     Indication: MIGRAINE
     Route: 048

REACTIONS (2)
  - DRY EYE [None]
  - VISUAL DISTURBANCE [None]
